FAERS Safety Report 22537058 (Version 5)
Quarter: 2024Q1

REPORT INFORMATION
  Report Type: Spontaneous
  Country: EC (occurrence: EC)
  Receive Date: 20230608
  Receipt Date: 20240119
  Transmission Date: 20240410
  Serious: Yes (Hospitalization, Other)
  Sender: FDA-Public Use
  Company Number: EC-PFIZER INC-PV202300084072

PATIENT
  Age: 14 Year
  Sex: Female

DRUGS (4)
  1. SOMATROPIN [Suspect]
     Active Substance: SOMATROPIN
     Dosage: 1.9 MG
     Route: 058
     Dates: start: 20211115
  2. SOMATROPIN [Suspect]
     Active Substance: SOMATROPIN
     Dosage: 2.1 MG
     Route: 058
  3. ESTROGENS [Suspect]
     Active Substance: ESTROGENS
     Indication: Ovarian disorder
     Dosage: UNK (PATCH)
     Route: 023
  4. ESTROGENS [Suspect]
     Active Substance: ESTROGENS
     Indication: Uterine disorder

REACTIONS (8)
  - Diabetes mellitus [Recovering/Resolving]
  - Allergic reaction to excipient [Recovering/Resolving]
  - Skin injury [Unknown]
  - Hypersensitivity [Unknown]
  - Hand deformity [Unknown]
  - Elbow deformity [Unknown]
  - Collagen disorder [Unknown]
  - Laboratory test abnormal [Unknown]

NARRATIVE: CASE EVENT DATE: 20230601
